FAERS Safety Report 7290670-5 (Version None)
Quarter: 2011Q1

REPORT INFORMATION
  Report Type: 
  Country: None (occurrence: None)
  Receive Date: 20110214
  Receipt Date: 20110203
  Transmission Date: 20110831
  Serious: Yes (Other)
  Sender: FDA-Public Use
  Company Number: SI-ASTRAZENECA-2011SE04300

PATIENT
  Age: 65 Year
  Sex: Female
  Weight: 71 kg

DRUGS (2)
  1. CRESTOR [Suspect]
     Indication: HYPERCHOLESTEROLAEMIA
     Route: 048
     Dates: start: 20101129
  2. CRESTOR [Suspect]
     Route: 048
     Dates: start: 20110118, end: 20110119

REACTIONS (4)
  - DYSPNOEA [None]
  - URTICARIA [None]
  - ERYTHEMA [None]
  - FACE OEDEMA [None]
